FAERS Safety Report 5164538-4 (Version None)
Quarter: 2006Q4

REPORT INFORMATION
  Report Type: 
  Country: None (occurrence: None)
  Receive Date: 20061205
  Receipt Date: 20061127
  Transmission Date: 20070319
  Serious: Yes (Hospitalization)
  Sender: FDA-Public Use
  Company Number: 2006CG01951

PATIENT
  Age: 69 Year
  Sex: Male

DRUGS (6)
  1. OMEPRAZOLE [Suspect]
     Route: 048
     Dates: start: 20000125, end: 20000203
  2. OFLOCET [Suspect]
     Indication: LUNG DISORDER
     Route: 048
     Dates: start: 20000125, end: 20000203
  3. ZOLPIDEM TARTRATE [Concomitant]
     Indication: SLEEP DISORDER
     Route: 048
     Dates: start: 20000125, end: 20000225
  4. DOLIPRANE [Concomitant]
     Route: 048
     Dates: start: 20000125, end: 20000125
  5. BRONCHOKOD [Concomitant]
     Indication: LUNG DISORDER
     Route: 048
     Dates: start: 20000125, end: 20000201
  6. MEDROL [Concomitant]
     Route: 048
     Dates: start: 20000125, end: 20000201

REACTIONS (2)
  - CONDITION AGGRAVATED [None]
  - RENAL FAILURE [None]
